FAERS Safety Report 7084258-9 (Version None)
Quarter: 2010Q4

REPORT INFORMATION
  Report Type: 
  Country: None (occurrence: None)
  Receive Date: 20101104
  Receipt Date: 20101026
  Transmission Date: 20110411
  Serious: Yes (Other)
  Sender: FDA-Public Use
  Company Number: US-PFIZER INC-2010119702

PATIENT
  Sex: Male
  Weight: 92.063 kg

DRUGS (5)
  1. VIAGRA [Suspect]
     Indication: ERECTILE DYSFUNCTION
     Dosage: 25 MG, AS NEEDED
     Route: 048
     Dates: start: 20000101
  2. VIAGRA [Suspect]
     Dosage: 50 MG, AS NEEDED
     Route: 048
     Dates: start: 20100701
  3. CARVEDILOL [Concomitant]
     Indication: HYPERTENSION
     Dosage: 12.5 MG, 2X/DAY
  4. SIMVASTATIN [Concomitant]
     Indication: HYPERTENSION
     Dosage: 40 MG, DAILY
  5. CARBAMAZEPINE [Concomitant]
     Indication: CONVULSION
     Dosage: UNK

REACTIONS (2)
  - DRUG INEFFECTIVE [None]
  - POOR PERIPHERAL CIRCULATION [None]
